FAERS Safety Report 8364664-2 (Version None)
Quarter: 2012Q2

REPORT INFORMATION
  Report Type: 
  Country: None (occurrence: None)
  Receive Date: 20120514
  Receipt Date: 20120502
  Transmission Date: 20120825
  Serious: Yes (Other)
  Sender: FDA-Public Use
  Company Number: ADR-2012-00855

PATIENT
  Sex: Female

DRUGS (1)
  1. BACLOFEN [Suspect]
     Indication: PAIN

REACTIONS (6)
  - PAIN IN EXTREMITY [None]
  - MUSCLE SPASMS [None]
  - DIZZINESS [None]
  - SPEECH DISORDER [None]
  - GRANULOMA [None]
  - MUSCLE TIGHTNESS [None]
